FAERS Safety Report 4434710-7 (Version None)
Quarter: 2004Q3

REPORT INFORMATION
  Report Type: 
  Country: None (occurrence: None)
  Receive Date: 20040827
  Receipt Date: 20040510
  Transmission Date: 20050211
  Serious: No
  Sender: FDA-Public Use
  Company Number: US-BRISTOL-MYERS SQUIBB COMPANY-12583761

PATIENT
  Age: 66 Year
  Sex: Male

DRUGS (8)
  1. DEFINITY [Suspect]
     Route: 040
     Dates: start: 20040507, end: 20040507
  2. LIPITOR [Concomitant]
  3. NITRO [Concomitant]
  4. ISOSORBIDE DINITRATE [Concomitant]
  5. LOPRESSOR [Concomitant]
  6. PLAVIX [Concomitant]
  7. ASPIRIN [Concomitant]
  8. LISINOPRIL [Concomitant]

REACTIONS (1)
  - BACK PAIN [None]
